FAERS Safety Report 4600216-5 (Version None)
Quarter: 2005Q1

REPORT INFORMATION
  Report Type: 
  Country: None (occurrence: None)
  Receive Date: 20050127
  Receipt Date: 20041207
  Transmission Date: 20050727
  Serious: No
  Sender: FDA-Public Use
  Company Number: USA041182980

PATIENT
  Age: 47 Year
  Sex: Female
  Weight: 53 kg

DRUGS (5)
  1. STRATTERA [Suspect]
     Indication: ATTENTION DEFICIT/HYPERACTIVITY DISORDER
     Dosage: 80 MG DAY
     Dates: start: 20040330
  2. FLONASE [Concomitant]
  3. PAXIL [Concomitant]
  4. WELLBUTRIN [Concomitant]
  5. ORAL CONTRACEPTIVE NOS [Concomitant]

REACTIONS (6)
  - ANOREXIA [None]
  - ASTHENIA [None]
  - NIGHT SWEATS [None]
  - SUBCUTANEOUS NODULE [None]
  - TREMOR [None]
  - WEIGHT DECREASED [None]
